FAERS Safety Report 4265045-3 (Version None)
Quarter: 2004Q1

REPORT INFORMATION
  Report Type: 
  Country: None (occurrence: None)
  Receive Date: 20040105
  Receipt Date: 20031222
  Transmission Date: 20041129
  Serious: No
  Sender: FDA-Public Use
  Company Number: 03P-144-0245453-00

PATIENT
  Age: 5 Year

DRUGS (2)
  1. VALPROATE SODIUM [Suspect]
     Indication: CONVULSION
     Dosage: 1 IN 1 D
  2. TOPIRAMATE [Suspect]
     Indication: COMPLEX PARTIAL SEIZURES

REACTIONS (15)
  - ANOREXIA [None]
  - APATHY [None]
  - ASTHENIA [None]
  - BLOOD IMMUNOGLOBULIN E INCREASED [None]
  - COMPLEX PARTIAL SEIZURES [None]
  - CONFUSIONAL STATE [None]
  - DRUG HYPERSENSITIVITY [None]
  - DRUG INTERACTION [None]
  - EOSINOPHILIA [None]
  - HYPERAMMONAEMIA [None]
  - HYPOTONIA [None]
  - METABOLIC ENCEPHALOPATHY [None]
  - RASH [None]
  - SOMNOLENCE [None]
  - WEIGHT DECREASED [None]
